FAERS Safety Report 5756275-X (Version None)
Quarter: 2008Q2

REPORT INFORMATION
  Report Type: 
  Country: None (occurrence: None)
  Receive Date: 20080602
  Receipt Date: 20070216
  Transmission Date: 20081010
  Serious: Yes (Hospitalization)
  Sender: FDA-Public Use
  Company Number: BE-ELI_LILLY_AND_COMPANY-BE200609002512

PATIENT
  Sex: Male

DRUGS (14)
  1. PEMETREXED [Suspect]
     Indication: NON-SMALL CELL LUNG CANCER
     Dosage: 938.8 MG, EVERY 3 WEEKS
     Route: 042
     Dates: start: 20060717
  2. PEMETREXED [Suspect]
     Dosage: 679.1 MG, EVERY 3 WEEKS
     Route: 042
     Dates: start: 20060814
  3. RADIATION [Suspect]
     Indication: NON-SMALL CELL LUNG CANCER
     Dosage: 10 GY
     Dates: start: 20060717
  4. RADIATION [Suspect]
     Dosage: 10 GY
     Dates: start: 20060816
  5. MIXTARD /DEN/ [Concomitant]
     Indication: DIABETES MELLITUS
  6. GLUCOPHAGE [Concomitant]
     Indication: DIABETES MELLITUS
  7. ZESTRIL                                 /USA/ [Concomitant]
     Indication: HYPERTENSION
     Dosage: 20 MG, UNK
  8. MECLIZINE HCL [Concomitant]
  9. EMCONCOR                                /BEL/ [Concomitant]
     Indication: HYPERTENSION
  10. SERETIDE ^ALLEN + HANBURYS LTD^ [Concomitant]
     Indication: CHRONIC OBSTRUCTIVE PULMONARY DISEASE
  11. VITAMIN B-12 [Concomitant]
     Indication: PROPHYLAXIS
     Dosage: EVERY 9 WEEKS
     Route: 030
     Dates: start: 20060623
  12. FOLIC ACID [Concomitant]
     Indication: PROPHYLAXIS
     Dosage: 0.4 MG, DAILY (1/D)
     Route: 048
     Dates: start: 20060623
  13. DEXAMETHASONE TAB [Concomitant]
     Indication: PROPHYLAXIS
     Dosage: VARIOUS 4 MG TO 125 MG
     Dates: start: 20060716
  14. SIMVASTATIN [Concomitant]
     Indication: HYPERCHOLESTEROLAEMIA

REACTIONS (2)
  - FEBRILE NEUTROPENIA [None]
  - PNEUMONIA [None]
